FAERS Safety Report 19782369 (Version 1)
Quarter: 2021Q3

REPORT INFORMATION
  Report Type: Spontaneous
  Country: US (occurrence: US)
  Receive Date: 20210902
  Receipt Date: 20210902
  Transmission Date: 20211014
  Serious: No
  Sender: FDA-Public Use
  Company Number: US-MYLANLABS-2021M1050673

PATIENT
  Sex: Female

DRUGS (2)
  1. PANTOPRAZOLE SODIUM DELAYED?RELEASE TABLETS, USP [Suspect]
     Active Substance: PANTOPRAZOLE SODIUM
     Indication: GASTROOESOPHAGEAL REFLUX DISEASE
     Dosage: 40 MILLIGRAM, QD
     Route: 048
  2. PANTOPRAZOLE SODIUM DELAYED?RELEASE TABLETS, USP [Suspect]
     Active Substance: PANTOPRAZOLE SODIUM
     Dosage: USING TWO A DAY
     Route: 048

REACTIONS (4)
  - Product commingling [Unknown]
  - Abdominal distension [Recovered/Resolved]
  - Gastrointestinal disorder [Recovered/Resolved]
  - Pain [Recovered/Resolved]
